FAERS Safety Report 25064772 (Version 1)
Quarter: 2025Q1

REPORT INFORMATION
  Report Type: Spontaneous
  Country: US (occurrence: US)
  Receive Date: 20250311
  Receipt Date: 20250311
  Transmission Date: 20250409
  Serious: No
  Sender: Unknown Manufacturer
  Company Number: US-NEURELIS-USNEU24000657

PATIENT

DRUGS (6)
  1. VALTOCO [Suspect]
     Active Substance: DIAZEPAM
     Indication: Epilepsy
     Route: 045
     Dates: start: 20240903
  2. VALTOCO [Suspect]
     Active Substance: DIAZEPAM
     Indication: Seizure
  3. XCOPRI [Concomitant]
     Active Substance: CENOBAMATE
     Indication: Product used for unknown indication
     Dosage: 100 MILLIGRAM, QD (AT NIGHT)
     Route: 065
  4. ZONISAMIDE [Concomitant]
     Active Substance: ZONISAMIDE
     Indication: Product used for unknown indication
     Route: 065
  5. LACOSAMIDE [Concomitant]
     Active Substance: LACOSAMIDE
     Indication: Product used for unknown indication
     Dosage: 200 MILLIGRAM, BID, AT AM/PM
     Route: 065
  6. CLOBAZAM [Concomitant]
     Active Substance: CLOBAZAM
     Indication: Product used for unknown indication
     Dosage: 10 MILLIGRAM, QD, AT NIGHT
     Route: 065

REACTIONS (3)
  - Fatigue [Recovered/Resolved]
  - Gait inability [Recovered/Resolved]
  - Somnolence [Recovered/Resolved]
